FAERS Safety Report 4555285-8 (Version None)
Quarter: 2005Q1

REPORT INFORMATION
  Report Type: 
  Country: None (occurrence: None)
  Receive Date: 20041227
  Receipt Date: 20040708
  Transmission Date: 20050727
  Serious: No
  Sender: FDA-Public Use
  Company Number: US082733

PATIENT
  Age: 61 Year
  Sex: Female

DRUGS (6)
  1. ARANESP [Suspect]
     Indication: ANAEMIA
     Dosage: 1 IN 2 WEEKS, SC
     Route: 058
     Dates: start: 20031001, end: 20031001
  2. FUROSEMIDE [Concomitant]
  3. LEVOTHRYROXINE SODIUM [Concomitant]
  4. VALSARTAN [Concomitant]
  5. GLIPIZIDE [Concomitant]
  6. INSULIN [Concomitant]

REACTIONS (1)
  - DIARRHOEA [None]
